FAERS Safety Report 22168619 (Version 2)
Quarter: 2023Q2

REPORT INFORMATION
  Report Type: Report from Study
  Country: US (occurrence: US)
  Receive Date: 20230403
  Receipt Date: 20230417
  Transmission Date: 20230721
  Serious: Yes (Hospitalization)
  Sender: FDA-Public Use
  Company Number: US-BAUSCH-BL-2023-005416

PATIENT
  Age: 74 Year
  Sex: Female
  Weight: 77.180 kg

DRUGS (1)
  1. XIFAXAN [Suspect]
     Active Substance: RIFAXIMIN
     Indication: Hepatic cirrhosis
     Route: 065
     Dates: start: 2022

REACTIONS (1)
  - Ammonia increased [Not Recovered/Not Resolved]
